FAERS Safety Report 9383363 (Version 1)
Quarter: 2013Q3

REPORT INFORMATION
  Report Type: Spontaneous
  Country: BR (occurrence: BR)
  Receive Date: 20130704
  Receipt Date: 20130704
  Transmission Date: 20140515
  Serious: Yes (Other)
  Sender: FDA-Public Use
  Company Number: BR-GE HEALTHCARE MEDICAL DIAGNOSTICS-OMPQ-PR-1306S-0832

PATIENT
  Age: 76 Year
  Sex: Male

DRUGS (4)
  1. OMNIPAQUE [Suspect]
     Indication: ANGINA PECTORIS
     Route: 013
     Dates: start: 20130426, end: 20130426
  2. OMNIPAQUE [Suspect]
     Indication: DIAGNOSTIC PROCEDURE
  3. MONOCORDIL [Concomitant]
  4. MIDAZOLAM [Concomitant]

REACTIONS (3)
  - Injection site erythema [Not Recovered/Not Resolved]
  - Tremor [Not Recovered/Not Resolved]
  - Pyrexia [Not Recovered/Not Resolved]
